FAERS Safety Report 15693729 (Version 1)
Quarter: 2018Q4

REPORT INFORMATION
  Report Type: Report from Study
  Country: ES (occurrence: ES)
  Receive Date: 20181206
  Receipt Date: 20181206
  Transmission Date: 20190205
  Serious: Yes (Other)
  Sender: FDA-Public Use
  Company Number: ES-AUROBINDO-AUR-APL-2018-058927

PATIENT
  Age: 69 Year
  Sex: Male

DRUGS (4)
  1. MEROPENEM. [Suspect]
     Active Substance: MEROPENEM
     Indication: PSEUDOMONAS INFECTION
     Dosage: 2 GRAM, 3 TIMES A DAY (8 HOUR)
     Route: 065
  2. COLISTIN [Suspect]
     Active Substance: COLISTIN
     Dosage: UNK
     Route: 055
  3. COLISTIN [Suspect]
     Active Substance: COLISTIN
     Indication: PSEUDOMONAS INFECTION
     Dosage: UNK
     Route: 042
  4. AVIBACTAM W/CEFTAZIDIME [Suspect]
     Active Substance: AVIBACTAM SODIUM\CEFTAZIDIME
     Indication: PSEUDOMONAS INFECTION
     Dosage: AS A 2H INFUSION EVERY 8H, AVIBACTAM: 0.50 G; CEFTAZIDIME: 2 G
     Route: 041

REACTIONS (1)
  - Drug ineffective for unapproved indication [Unknown]
